FAERS Safety Report 6450535-5 (Version None)
Quarter: 2009Q4

REPORT INFORMATION
  Report Type: 
  Country: None (occurrence: None)
  Receive Date: 20091123
  Receipt Date: 20091109
  Transmission Date: 20100525
  Serious: Yes (Other)
  Sender: FDA-Public Use
  Company Number: US-SANOFI-AVENTIS-200918832US

PATIENT
  Age: 58 Year
  Sex: Female
  Weight: 118 kg

DRUGS (7)
  1. INSULIN GLARGINE [Suspect]
     Indication: TYPE 2 DIABETES MELLITUS
     Dosage: DOSE AS USED: 33U IN AM AND 33U INPM  DOSE:33 UNIT(S)
     Route: 058
     Dates: start: 20040101
  2. OPTICLICK [Suspect]
     Indication: TYPE 2 DIABETES MELLITUS
     Dates: start: 20040101
  3. NEXIUM /UNK/ [Concomitant]
     Dates: start: 20061001
  4. ENBREL [Concomitant]
     Indication: ARTHRITIS
     Dates: start: 20050101
  5. ACTOS [Concomitant]
     Dates: start: 20061001
  6. TOPROL-XL [Concomitant]
  7. TRICOR [Concomitant]

REACTIONS (1)
  - CEREBROVASCULAR ACCIDENT [None]
